FAERS Safety Report 6877066-2 (Version None)
Quarter: 2010Q3

REPORT INFORMATION
  Report Type: 
  Country: None (occurrence: None)
  Receive Date: 20100727
  Receipt Date: 20100727
  Transmission Date: 20110219
  Serious: Yes (Life-Threatening, Hospitalization, Disabling)
  Sender: FDA-Public Use
  Company Number: None

PATIENT
  Age: 54 Year
  Sex: Female

DRUGS (22)
  1. RISPERIDONE [Suspect]
     Indication: PSYCHOTIC DISORDER
     Dosage: 3MG DAILY PO
     Route: 048
     Dates: start: 20100101, end: 20100722
  2. METOCLOPRAMIDE [Suspect]
     Indication: NAUSEA
     Dosage: 10MG Q6H PRN IV BOLUS  X1 DOSE
     Route: 040
     Dates: start: 20100722, end: 20100722
  3. SERTRALINE HYDROCHLORIDE [Concomitant]
  4. TRAZODONE [Concomitant]
  5. AMANTADINE HCL [Concomitant]
  6. AMLODIPINE [Concomitant]
  7. ATORVASTATIN [Concomitant]
  8. ENOXAPARIN SODIUM [Concomitant]
  9. FAMOTIDINE [Concomitant]
  10. FERROUS SULFATE [Concomitant]
  11. FOLIC ACID [Concomitant]
  12. HYDRALAZINE HCL [Concomitant]
  13. HYDROXYCHLOROQUINE [Concomitant]
  14. ISOSORBIDE MONONITRATE [Concomitant]
  15. LEVOTHYROXINE SODIUM [Concomitant]
  16. LORAZEPAM [Concomitant]
  17. MORPHINE [Concomitant]
  18. ONDANSETRON [Concomitant]
  19. OXYCODONE [Concomitant]
  20. PANTOPRAZOLE [Concomitant]
  21. PROPRANOLOL [Concomitant]
  22. VALSARTAN [Concomitant]

REACTIONS (9)
  - BLOOD CREATINE PHOSPHOKINASE INCREASED [None]
  - BLOOD CREATINE PHOSPHOKINASE MB INCREASED [None]
  - BODY TEMPERATURE INCREASED [None]
  - HEART RATE INCREASED [None]
  - HYPOTENSION [None]
  - MENTAL STATUS CHANGES [None]
  - NEUROLEPTIC MALIGNANT SYNDROME [None]
  - TREMOR [None]
  - VISION BLURRED [None]
